FAERS Safety Report 8221870-5 (Version None)
Quarter: 2012Q1

REPORT INFORMATION
  Report Type: 
  Country: None (occurrence: None)
  Receive Date: 20120320
  Receipt Date: 20120311
  Transmission Date: 20120608
  Serious: Yes (Other)
  Sender: FDA-Public Use
  Company Number: US-JNJFOC-20120306900

PATIENT
  Age: 58 Year
  Sex: Male

DRUGS (1)
  1. DOXORUBICIN HCL [Suspect]
     Indication: LEIOMYOSARCOMA
     Dosage: EVERY 6 WEEKS
     Route: 042
     Dates: start: 20070101

REACTIONS (2)
  - OFF LABEL USE [None]
  - ADVERSE EVENT [None]
